FAERS Safety Report 6252608-9 (Version None)
Quarter: 2009Q3

REPORT INFORMATION
  Report Type: 
  Country: None (occurrence: None)
  Receive Date: 20090701
  Receipt Date: 20090623
  Transmission Date: 20100115
  Serious: Yes (Hospitalization)
  Sender: FDA-Public Use
  Company Number: DE-ROCHE-635648

PATIENT
  Sex: Male

DRUGS (1)
  1. ROCEPHIN [Suspect]
     Route: 042
     Dates: start: 20090511

REACTIONS (4)
  - CHILLS [None]
  - CYANOSIS [None]
  - HYPERSENSITIVITY [None]
  - TACHYCARDIA [None]
